FAERS Safety Report 14201778 (Version 3)
Quarter: 2017Q4

REPORT INFORMATION
  Report Type: Spontaneous
  Country: US (occurrence: US)
  Receive Date: 20171117
  Receipt Date: 20171229
  Transmission Date: 20180321
  Serious: Yes (Other)
  Sender: FDA-Public Use
  Company Number: US-OMEROS CORPORATION-2017OME00015

PATIENT
  Age: 74 Year
  Sex: Female

DRUGS (15)
  1. OMIDRIA [Suspect]
     Active Substance: KETOROLAC\PHENYLEPHRINE
     Indication: INTRAOCULAR LENS IMPLANT
  2. CITRACAL + D MAXIMUM 315 [Concomitant]
     Dosage: 1 CAPSULES, 1X/DAY
     Route: 048
  3. OMIDRIA [Suspect]
     Active Substance: KETOROLAC\PHENYLEPHRINE
     Indication: CATARACT OPERATION
     Dosage: UNK, ONCE, RIGHT EYE
     Route: 031
     Dates: start: 20170912, end: 20170912
  4. MULTIVITAMIN [Concomitant]
     Active Substance: VITAMINS
     Dosage: 1 TABLETS, 1X/DAY
     Route: 048
  5. KETOROLAC [Concomitant]
     Active Substance: KETOROLAC\KETOROLAC TROMETHAMINE
     Dosage: UNK, 4X/DAY RIGHT EYE
     Dates: start: 20170909
  6. STERILE SALINE [Concomitant]
     Dosage: UNK, ONCE
     Route: 061
     Dates: start: 20170912, end: 20170912
  7. ZYRTEC [Concomitant]
     Active Substance: CETIRIZINE HYDROCHLORIDE
     Dosage: 10 MG, 1X/DAY
     Route: 048
  8. VISCOAT [Concomitant]
     Dosage: UNK, ONCE
     Route: 031
     Dates: start: 20170912, end: 20170912
  9. DUOVISC [Concomitant]
     Active Substance: CHONDROITIN SULFATE A\HYALURONATE SODIUM
     Dosage: UNK, ONCE
     Dates: start: 20170912, end: 20170912
  10. LEVOTHYROXINE. [Concomitant]
     Active Substance: LEVOTHYROXINE
     Dosage: 88 ?G, 1X/DAY
     Route: 048
  11. ALCON BSS [Concomitant]
     Dosage: UNK, ONCE
     Dates: start: 20170912, end: 20170912
  12. BETADINE [Concomitant]
     Active Substance: POVIDONE-IODINE
     Dosage: UNK, ONCE
     Route: 061
     Dates: start: 20170912, end: 20170912
  13. PRESERVATIVE FREE LIDOCAINE [Concomitant]
     Dosage: UNK, ONCE
     Route: 031
     Dates: start: 20170912, end: 20170912
  14. MULTIVITAMIN [Concomitant]
     Active Substance: VITAMINS
     Dosage: 1 CAPSULES, 1X/DAY
     Route: 048
  15. OFLOXACIN. [Concomitant]
     Active Substance: OFLOXACIN
     Dosage: UNK, 4X/DAY OU (BOTH EYES)
     Dates: start: 20170909

REACTIONS (7)
  - Toxic anterior segment syndrome [Unknown]
  - Iridocyclitis [Recovered/Resolved]
  - Endophthalmitis [Recovered/Resolved]
  - Anterior chamber disorder [Recovered/Resolved]
  - Fibrosis [Recovered/Resolved]
  - Fibrin deposition on lens postoperative [Recovered/Resolved]
  - Anterior chamber inflammation [Recovered/Resolved]

NARRATIVE: CASE EVENT DATE: 2017
